FAERS Safety Report 6585162-2 (Version None)
Quarter: 2010Q1

REPORT INFORMATION
  Report Type: 
  Country: None (occurrence: None)
  Receive Date: 20100217
  Receipt Date: 20100210
  Transmission Date: 20100710
  Serious: No
  Sender: FDA-Public Use
  Company Number: BR-ROCHE-685051

PATIENT
  Age: 43 Year
  Sex: Female

DRUGS (2)
  1. ROACUTAN [Suspect]
     Indication: ACNE
     Dosage: OTHER INDICATION: OILY SKIN; DOSE: THREE CAPSULES A WEEK
     Route: 065
     Dates: start: 20090901
  2. ROACUTAN [Suspect]
     Dosage: DOSE: 1 CAPSULE A WEEK
     Route: 065
     Dates: start: 20091112, end: 20091205

REACTIONS (2)
  - NO ADVERSE EVENT [None]
  - PREGNANCY [None]
